FAERS Safety Report 7623358 (Version 5)
Quarter: 2013Q2

REPORT INFORMATION
  Report Type: Report from Study
  Country: US (occurrence: US)
  Receive Date: 20101011
  Receipt Date: 20130617
  Transmission Date: 20140414
  Serious: Yes (Hospitalization, Other)
  Sender: FDA-Public Use
  Company Number: US-ACTELION-A-US2010-40174

PATIENT
  Age: 71 Year
  Sex: Female

DRUGS (3)
  1. TRACLEER [Suspect]
     Indication: PULMONARY ARTERIAL HYPERTENSION
     Dosage: 125 MG, UNK
     Route: 048
     Dates: start: 200404
  2. REVATIO [Concomitant]
  3. OXYGEN [Concomitant]

REACTIONS (14)
  - Cardiac pacemaker insertion [Unknown]
  - Dyspnoea [Not Recovered/Not Resolved]
  - Fluid retention [Recovered/Resolved with Sequelae]
  - Dizziness [Unknown]
  - Sinusitis [Unknown]
  - Upper respiratory tract infection [Unknown]
  - Swelling face [Unknown]
  - Local swelling [Unknown]
  - General physical health deterioration [Unknown]
  - Oxygen supplementation [Unknown]
  - Hypersensitivity [Not Recovered/Not Resolved]
  - Nasopharyngitis [Recovered/Resolved]
  - Sinus congestion [Not Recovered/Not Resolved]
  - Malaise [Not Recovered/Not Resolved]
